FAERS Safety Report 18770804 (Version 1)
Quarter: 2021Q1

REPORT INFORMATION
  Report Type: Spontaneous
  Country: DE (occurrence: DE)
  Receive Date: 20210122
  Receipt Date: 20210122
  Transmission Date: 20210419
  Serious: Yes (Other)
  Sender: FDA-Public Use
  Company Number: DE-DRREDDYS-GER/GER/21/0131060

PATIENT
  Age: 1 Day
  Sex: Male
  Weight: 2.66 kg

DRUGS (4)
  1. VALDOXAN [Concomitant]
     Active Substance: AGOMELATINE
     Indication: PRODUCT USED FOR UNKNOWN INDICATION
     Dosage: 50 [MG/D (VATER) ]
     Route: 065
     Dates: start: 20191104, end: 20200814
  2. QUETIAPINE. [Concomitant]
     Active Substance: QUETIAPINE
     Indication: PRODUCT USED FOR UNKNOWN INDICATION
     Dosage: 37.5 [MG/D (VATER) ]
     Route: 065
     Dates: start: 20191104, end: 20200814
  3. CITALOPRAM [Suspect]
     Active Substance: CITALOPRAM HYDROBROMIDE
     Indication: PRODUCT USED FOR UNKNOWN INDICATION
     Dosage: 30 [MG/D (BIS 22.5 MG/D) MOTHER ]
     Route: 064
     Dates: start: 20191104, end: 20200814
  4. IBUPROFEN. [Concomitant]
     Active Substance: IBUPROFEN
     Indication: PRODUCT USED FOR UNKNOWN INDICATION
     Dosage: 400 [MG/D (MOTHER) ]/ ONLY 1 TO 3 DAYS
     Route: 064

REACTIONS (2)
  - Small for dates baby [Unknown]
  - Foetal exposure during pregnancy [Unknown]

NARRATIVE: CASE EVENT DATE: 20200814
